FAERS Safety Report 22182493 (Version 1)
Quarter: 2023Q2

REPORT INFORMATION
  Report Type: Other
  Country: None (occurrence: CA)
  Receive Date: 20230406
  Receipt Date: 20230406
  Transmission Date: 20230722
  Serious: Yes (Hospitalization, Other)
  Sender: FDA-Public Use
  Company Number: CA-B.Braun Medical Inc.-2140004

PATIENT
  Age: 29 Year
  Sex: Female

DRUGS (4)
  1. ACETAMINOPHEN [Suspect]
     Active Substance: ACETAMINOPHEN
     Indication: Back pain
  2. OXYCODONE [Suspect]
     Active Substance: OXYCODONE
  3. OXYCODONE. [Suspect]
     Active Substance: OXYCODONE HYDROCHLORIDE
  4. GABAPENTIN [Suspect]
     Active Substance: GABAPENTIN

REACTIONS (6)
  - Acidosis hyperchloraemic [Recovered/Resolved]
  - Blood creatinine increased [Recovered/Resolved]
  - Anion gap increased [Recovered/Resolved]
  - Dyspnoea [Recovered/Resolved]
  - Exposure during pregnancy [Recovered/Resolved]
  - Accidental overdose [Recovered/Resolved]
